FAERS Safety Report 7869541-9 (Version None)
Quarter: 2011Q4

REPORT INFORMATION
  Report Type: 
  Country: None (occurrence: None)
  Receive Date: 20111028
  Receipt Date: 20110105
  Transmission Date: 20120403
  Serious: No
  Sender: FDA-Public Use
  Company Number: US-AMGEN-USASP2011000774

PATIENT
  Sex: Female

DRUGS (1)
  1. ENBREL [Suspect]
     Indication: RHEUMATOID ARTHRITIS
     Dosage: 50 MG, QWK
     Dates: start: 20101227

REACTIONS (6)
  - SINUS CONGESTION [None]
  - THROAT IRRITATION [None]
  - CHILLS [None]
  - OROPHARYNGEAL PAIN [None]
  - COUGH [None]
  - EAR CONGESTION [None]
